FAERS Safety Report 10415452 (Version 1)
Quarter: 2014Q2

REPORT INFORMATION
  Report Type: Spontaneous
  Country: US (occurrence: None)
  Receive Date: 20140604
  Receipt Date: 20140604
  Transmission Date: 20141212
  Serious: Yes (Hospitalization)
  Sender: FDA-Public Use
  Company Number: 163-POMAL-14014046

PATIENT
  Age: 52 Year
  Sex: Male

DRUGS (9)
  1. POMALYST (POMALIDOMIDE) (4 MILLIGRAM, CAPSULES) [Suspect]
     Indication: PLASMA CELL MYELOMA
     Route: 048
     Dates: start: 201305
  2. CYCLOPHOSPHAMIDE [Concomitant]
  3. SYNTHROID (LEVOTHYROXINE) [Concomitant]
  4. TESTOSTERONE [Concomitant]
  5. COUMADIN (WARFARIN SODIUM) [Concomitant]
  6. ZOMETA (ZOLEDRONIC ACID) [Concomitant]
  7. VITAMIN D (ERGOCALCIFEROL) [Concomitant]
  8. CALCIUM +D (OS-CAL) [Concomitant]
  9. DECADRON (DEXAMETHASONE) [Concomitant]

REACTIONS (1)
  - Hypercalcaemia [None]
